FAERS Safety Report 8045033-1 (Version None)
Quarter: 2012Q1

REPORT INFORMATION
  Report Type: 
  Country: None (occurrence: None)
  Receive Date: 20120113
  Receipt Date: 20120109
  Transmission Date: 20120608
  Serious: Yes (Hospitalization)
  Sender: FDA-Public Use
  Company Number: PHEH2012US001037

PATIENT
  Sex: Male

DRUGS (5)
  1. CARVEDILOL [Concomitant]
     Dosage: UNK
     Dates: start: 20081112
  2. AMLODIPINE BESILATE W/ OLMESARTAN MEDOXOMIL [Concomitant]
     Dosage: UNK
  3. TEKTURNA HCT [Suspect]
     Indication: HYPERTENSION
     Dosage: 1 DF (300/25MG), QD
     Route: 048
     Dates: start: 20070810
  4. DILTIAZEM HCL [Concomitant]
     Dosage: 300 MG, UNK
  5. TEKTURNA [Suspect]
     Indication: HYPERTENSION
     Dosage: 150 MG, UNK
     Dates: start: 20070713

REACTIONS (2)
  - CORONARY ARTERY DISEASE [None]
  - MYOCARDIAL INFARCTION [None]
